FAERS Safety Report 5448696-X (Version None)
Quarter: 2007Q3

REPORT INFORMATION
  Report Type: 
  Country: None (occurrence: None)
  Receive Date: 20070911
  Receipt Date: 20070904
  Transmission Date: 20080115
  Serious: Yes (Hospitalization)
  Sender: FDA-Public Use
  Company Number: A0678453A

PATIENT
  Age: 36 Year
  Sex: Female

DRUGS (3)
  1. PAXIL CR [Suspect]
     Indication: MAJOR DEPRESSION
     Dosage: 25MG PER DAY
     Route: 048
     Dates: start: 20060201
  2. BENADRYL [Suspect]
     Indication: DRUG USE FOR UNKNOWN INDICATION
     Route: 065
  3. VALIUM [Concomitant]

REACTIONS (3)
  - CONVULSION [None]
  - OCULAR ICTERUS [None]
  - WEIGHT DECREASED [None]
